FAERS Safety Report 24307321 (Version 5)
Quarter: 2025Q1

REPORT INFORMATION
  Report Type: Report from Study
  Country: CA (occurrence: CA)
  Receive Date: 20240911
  Receipt Date: 20250228
  Transmission Date: 20250409
  Serious: Yes (Hospitalization)
  Sender: UCB
  Company Number: CA-UCBSA-2024044473

PATIENT
  Sex: Female

DRUGS (6)
  1. BIMEKIZUMAB [Suspect]
     Active Substance: BIMEKIZUMAB
     Indication: Psoriasis
     Dosage: 320 MILLIGRAM, EV 4 WEEKS X 4
     Route: 058
     Dates: start: 20231004
  2. BIMEKIZUMAB [Suspect]
     Active Substance: BIMEKIZUMAB
     Dosage: 320 MILLIGRAM, EV 8 WEEKS
     Route: 058
  3. CRESTOR [Concomitant]
     Active Substance: ROSUVASTATIN CALCIUM
     Indication: Product used for unknown indication
  4. PERINDOPRIL ARGININE [Concomitant]
     Active Substance: PERINDOPRIL ARGININE
     Indication: Product used for unknown indication
  5. PERINDOPRIL [Concomitant]
     Active Substance: PERINDOPRIL
     Indication: Product used for unknown indication
  6. COVID-19 VACCINE [Concomitant]
     Indication: Product used for unknown indication

REACTIONS (12)
  - Acute myocardial infarction [Recovering/Resolving]
  - Coronary artery bypass [Recovering/Resolving]
  - Infection [Recovering/Resolving]
  - Wound dehiscence [Recovered/Resolved]
  - Muscle spasms [Not Recovered/Not Resolved]
  - Psoriasis [Not Recovered/Not Resolved]
  - Cardiac disorder [Not Recovered/Not Resolved]
  - COVID-19 immunisation [Not Recovered/Not Resolved]
  - Intentional dose omission [Unknown]
  - Inappropriate schedule of product administration [Unknown]
  - Product dose omission issue [Unknown]
  - Therapeutic response shortened [Unknown]

NARRATIVE: CASE EVENT DATE: 20240101
